FAERS Safety Report 11496261 (Version 7)
Quarter: 2016Q1

REPORT INFORMATION
  Report Type: Report from Study
  Country: US (occurrence: US)
  Receive Date: 20150911
  Receipt Date: 20160128
  Transmission Date: 20160525
  Serious: Yes (Other)
  Sender: FDA-Public Use
  Company Number: US-JNJFOC-20150906166

PATIENT
  Age: 17 Year
  Sex: Male
  Weight: 70.31 kg

DRUGS (12)
  1. FOLIC ACID. [Concomitant]
     Active Substance: FOLIC ACID
     Indication: COLITIS ULCERATIVE
     Route: 065
     Dates: start: 20130915
  2. RETIN-A [Concomitant]
     Active Substance: TRETINOIN
     Indication: ACNE
     Route: 061
     Dates: start: 20130130
  3. FOLIC ACID. [Concomitant]
     Active Substance: FOLIC ACID
     Indication: COLITIS ULCERATIVE
     Route: 065
     Dates: start: 201310
  4. BALSALAZIDE [Concomitant]
     Active Substance: BALSALAZIDE
     Indication: COLITIS ULCERATIVE
     Route: 065
     Dates: start: 20130915
  5. OMEPRAZOLE. [Concomitant]
     Active Substance: OMEPRAZOLE
     Indication: GASTRIC ULCER
     Route: 065
     Dates: start: 201310
  6. FOLIC ACID. [Concomitant]
     Active Substance: FOLIC ACID
     Indication: NEOPLASM PROPHYLAXIS
     Route: 065
     Dates: start: 20130915
  7. ACANYA [Concomitant]
     Active Substance: BENZOYL PEROXIDE\CLINDAMYCIN PHOSPHATE
     Indication: ACNE
     Route: 061
     Dates: start: 20130201
  8. OMEPRAZOLE. [Concomitant]
     Active Substance: OMEPRAZOLE
     Indication: GASTRIC ULCER
     Route: 065
     Dates: start: 20130915
  9. FOLIC ACID. [Concomitant]
     Active Substance: FOLIC ACID
     Indication: NEOPLASM PROPHYLAXIS
     Route: 065
     Dates: start: 201310
  10. BALSALAZIDE [Concomitant]
     Active Substance: BALSALAZIDE
     Indication: COLITIS ULCERATIVE
     Route: 065
     Dates: start: 201310
  11. CLINDAMYCIN [Concomitant]
     Active Substance: CLINDAMYCIN\CLINDAMYCIN PHOSPHATE
     Indication: ACNE
     Route: 061
     Dates: start: 20130130
  12. REMICADE [Suspect]
     Active Substance: INFLIXIMAB
     Indication: COLITIS ULCERATIVE
     Route: 042
     Dates: start: 20150609, end: 20151124

REACTIONS (3)
  - Keratoacanthoma [Recovered/Resolved]
  - Influenza [Recovered/Resolved]
  - Dermal cyst [Recovered/Resolved]

NARRATIVE: CASE EVENT DATE: 201507
